FAERS Safety Report 20345380 (Version 2)
Quarter: 2022Q1

REPORT INFORMATION
  Report Type: Report from Study
  Country: FR (occurrence: FR)
  Receive Date: 20220118
  Receipt Date: 20220121
  Transmission Date: 20220423
  Serious: Yes (Hospitalization, Other)
  Sender: FDA-Public Use
  Company Number: FR-ASTELLAS-2021US036311

PATIENT
  Age: 64 Year
  Sex: Male

DRUGS (2)
  1. ENFORTUMAB VEDOTIN [Suspect]
     Active Substance: ENFORTUMAB VEDOTIN
     Indication: Transitional cell carcinoma
     Dosage: UNK UNK, CYCLIC
     Route: 042
     Dates: start: 20210909
  2. ENFORTUMAB VEDOTIN [Suspect]
     Active Substance: ENFORTUMAB VEDOTIN
     Dosage: 1.25 MG/KG, CYCLIC (C1 D8)
     Route: 042
     Dates: start: 20210916

REACTIONS (6)
  - Hypomagnesaemia [Unknown]
  - Hypophosphataemia [Unknown]
  - Acute kidney injury [Unknown]
  - Toxic epidermal necrolysis [Recovering/Resolving]
  - Febrile neutropenia [Unknown]
  - Diarrhoea [Unknown]
